FAERS Safety Report 21306352 (Version 1)
Quarter: 2022Q3

REPORT INFORMATION
  Report Type: Spontaneous
  Country: US (occurrence: US)
  Receive Date: 20220908
  Receipt Date: 20220908
  Transmission Date: 20221027
  Serious: No
  Sender: FDA-Public Use
  Company Number: US-GLENMARK PHARMACEUTICALS-2022GMK071487

PATIENT

DRUGS (1)
  1. FLUOCINOLONE ACETONIDE [Suspect]
     Active Substance: FLUOCINOLONE ACETONIDE
     Indication: Psoriasis
     Dosage: SHAKING THE BOTTLE, PUT IT IN THE HAIR AND MASSAGE IT REAL GOOD FOR 4 HOURS WITH A CAP
     Route: 061

REACTIONS (3)
  - Blister [Unknown]
  - Wrong technique in product usage process [Unknown]
  - Skin irritation [Unknown]
